FAERS Safety Report 10912049 (Version 1)
Quarter: 2015Q1

REPORT INFORMATION
  Report Type: Spontaneous
  Country: US (occurrence: None)
  Receive Date: 20150310
  Receipt Date: 20150310
  Transmission Date: 20150721
  Serious: Yes (Hospitalization)
  Sender: FDA-Public Use
  Company Number: None

PATIENT
  Age: 64 Year
  Sex: Female
  Weight: 77.9 kg

DRUGS (3)
  1. LENALIDOMIDE (CC-5013) [Suspect]
     Active Substance: LENALIDOMIDE
     Dates: end: 20150202
  2. DEXAMETHASONE. [Suspect]
     Active Substance: DEXAMETHASONE
     Dates: end: 20150113
  3. PS-341 [Suspect]
     Active Substance: BORTEZOMIB
     Dates: end: 20150130

REACTIONS (5)
  - Vomiting [None]
  - Lobar pneumonia [None]
  - Nausea [None]
  - Cough [None]
  - Plasma cell myeloma [None]

NARRATIVE: CASE EVENT DATE: 20150301
